FAERS Safety Report 20406091 (Version 2)
Quarter: 2022Q1

REPORT INFORMATION
  Report Type: Spontaneous
  Country: IN (occurrence: IN)
  Receive Date: 20220131
  Receipt Date: 20220222
  Transmission Date: 20220423
  Serious: Yes (Hospitalization, Other)
  Sender: FDA-Public Use
  Company Number: IN-MLMSERVICE-20220113-3315989-1

PATIENT
  Age: 62 Year
  Sex: Male

DRUGS (1)
  1. LEVETIRACETAM [Suspect]
     Active Substance: LEVETIRACETAM
     Indication: Seizure
     Dosage: UNK (150 TABLETS OF 250 MG, TOTAL)
     Route: 048

REACTIONS (9)
  - Toxicity to various agents [Unknown]
  - Areflexia [Recovered/Resolved]
  - Sluggishness [Recovered/Resolved]
  - Intentional overdose [Unknown]
  - Acute kidney injury [Recovered/Resolved]
  - Polyneuropathy [Recovered/Resolved]
  - Somnolence [Recovered/Resolved]
  - Mental disorder [Unknown]
  - Suicidal ideation [Unknown]
